FAERS Safety Report 6935128-5 (Version None)
Quarter: 2010Q3

REPORT INFORMATION
  Report Type: 
  Country: None (occurrence: None)
  Receive Date: 20100822
  Receipt Date: 20100813
  Transmission Date: 20110219
  Serious: Yes (Life-Threatening, Hospitalization)
  Sender: FDA-Public Use
  Company Number: PHHY2010CA53760

PATIENT
  Sex: Male

DRUGS (9)
  1. ALISKIREN ALI+ [Suspect]
     Indication: HYPERTENSION
     Dosage: 150 MG, QD
     Route: 048
     Dates: start: 20100406, end: 20100712
  2. ALTACE [Suspect]
     Indication: MYOCARDIAL INFARCTION
     Dosage: 10 MG, QD
     Route: 048
     Dates: start: 20100406, end: 20100712
  3. CADUET [Concomitant]
  4. ACTOS [Concomitant]
     Dosage: 30 MG
  5. DIABETA [Concomitant]
  6. GLUCOPHAGE [Concomitant]
  7. MONOCOR [Concomitant]
     Dosage: 10 MG
  8. PLAVIX [Concomitant]
     Dosage: 75 MG
  9. ASPIRIN [Concomitant]

REACTIONS (7)
  - ASTHENIA [None]
  - CEREBROVASCULAR ACCIDENT [None]
  - DEHYDRATION [None]
  - LIMB DISCOMFORT [None]
  - NAUSEA [None]
  - RENAL FAILURE ACUTE [None]
  - URINARY RETENTION [None]
